FAERS Safety Report 21747938 (Version 1)
Quarter: 2022Q4

REPORT INFORMATION
  Report Type: Spontaneous
  Country: US (occurrence: None)
  Receive Date: 20221216
  Receipt Date: 20221216
  Transmission Date: 20230113
  Serious: No
  Sender: FDA-Public Use
  Company Number: None

PATIENT
  Age: 22 Year
  Sex: Female
  Weight: 112.5 kg

DRUGS (3)
  1. ELAVIL [Suspect]
     Active Substance: AMITRIPTYLINE HYDROCHLORIDE
     Indication: Migraine prophylaxis
     Dosage: OTHER QUANTITY : 1 TABLET(S);?FREQUENCY : AT BEDTIME;?
     Route: 048
  2. Junel 1.5/30 Pro Air [Concomitant]
  3. ACETAMINOPHEN [Concomitant]
     Active Substance: ACETAMINOPHEN

REACTIONS (18)
  - Somnolence [None]
  - Fatigue [None]
  - Dry mouth [None]
  - Headache [None]
  - Vision blurred [None]
  - Paraesthesia [None]
  - Hyperhidrosis [None]
  - Balance disorder [None]
  - Speech disorder [None]
  - Dizziness [None]
  - Chest pain [None]
  - Tremor [None]
  - Hallucination [None]
  - Hypoaesthesia [None]
  - Dissociation [None]
  - Dizziness [None]
  - Eye disorder [None]
  - Dyspnoea [None]

NARRATIVE: CASE EVENT DATE: 20221216
